FAERS Safety Report 8582583-3 (Version None)
Quarter: 2012Q3

REPORT INFORMATION
  Report Type: 
  Country: None (occurrence: None)
  Receive Date: 20120809
  Receipt Date: 20120803
  Transmission Date: 20120928
  Serious: Yes (Hospitalization)
  Sender: FDA-Public Use
  Company Number: JP-B.I. PHARMACEUTICALS,INC./RIDGEFIELD-2012-BP-17411NB

PATIENT
  Age: 69 Year
  Sex: Female

DRUGS (2)
  1. SPIRIVA [Suspect]
     Route: 055
  2. SPIRIVA [Suspect]
     Route: 055
     Dates: start: 20120803

REACTIONS (3)
  - PYREXIA [None]
  - THROAT TIGHTNESS [None]
  - COUGH [None]
